FAERS Safety Report 24221500 (Version 1)
Quarter: 2024Q3

REPORT INFORMATION
  Report Type: Spontaneous
  Country: PT (occurrence: PT)
  Receive Date: 20240819
  Receipt Date: 20240819
  Transmission Date: 20241016
  Serious: Yes (Death, Other)
  Sender: EPIC PHARM
  Company Number: PT-EPICPHARMA-PT-2024EPCLIT01001

PATIENT
  Sex: Male

DRUGS (1)
  1. IRINOTECAN HYDROCHLORIDE [Suspect]
     Active Substance: IRINOTECAN HYDROCHLORIDE
     Indication: Transcatheter arterial chemoembolisation
     Route: 065

REACTIONS (3)
  - Pancreatitis necrotising [Fatal]
  - Embolism [Fatal]
  - Regurgitation [Fatal]
